FAERS Safety Report 6191613-8 (Version None)
Quarter: 2009Q2

REPORT INFORMATION
  Report Type: 
  Country: None (occurrence: None)
  Receive Date: 20090515
  Receipt Date: 20090507
  Transmission Date: 20091009
  Serious: Yes (Other)
  Sender: FDA-Public Use
  Company Number: PHHY2009BR12101

PATIENT
  Sex: Female
  Weight: 76 kg

DRUGS (6)
  1. FEMARA [Suspect]
     Indication: BREAST CANCER
     Dosage: 2.5 MG (1 TABLET DAILY), QD
     Route: 048
  2. ARADOIS [Concomitant]
     Indication: PULMONARY ARTERIAL HYPERTENSION
     Dosage: UNK
     Route: 048
  3. CHONDROITIN SULFATE SODIUM [Concomitant]
     Indication: OSTEOARTHRITIS
     Dosage: UNK
     Route: 048
  4. LOSARTAN POTASSIUM [Concomitant]
     Indication: HYPERTENSION
     Dosage: 75MG 1 TABLET DAILY
     Route: 048
  5. ALENDRONATE SODIUM [Concomitant]
     Indication: OSTEOPOROSIS
     Dosage: 1 TABLET A WEEK
     Route: 048
  6. NORTRIPTYLINE HCL [Concomitant]
     Indication: PAIN
     Dosage: 10MG 1 TABLET DAILY

REACTIONS (8)
  - ALOPECIA [None]
  - CANDIDIASIS [None]
  - ERYTHEMA [None]
  - FOLLICULITIS [None]
  - PAIN [None]
  - RASH PUSTULAR [None]
  - SEBORRHOEA [None]
  - SKIN BURNING SENSATION [None]
